FAERS Safety Report 5712872-9 (Version None)
Quarter: 2008Q2

REPORT INFORMATION
  Report Type: 
  Country: None (occurrence: None)
  Receive Date: 20080422
  Receipt Date: 20080418
  Transmission Date: 20081010
  Serious: Yes (Hospitalization)
  Sender: FDA-Public Use
  Company Number: B0517517A

PATIENT
  Age: 49 Year
  Sex: Male

DRUGS (1)
  1. AUGMENTIN '125' [Suspect]
     Indication: ACUTE SINUSITIS
     Dosage: 625MG PER DAY
     Route: 048
     Dates: start: 20070922

REACTIONS (5)
  - CHILLS [None]
  - DERMATITIS ALLERGIC [None]
  - DYSPEPSIA [None]
  - FLUSHING [None]
  - HYPOTENSION [None]
